FAERS Safety Report 17283201 (Version 1)
Quarter: 2020Q1

REPORT INFORMATION
  Report Type: Spontaneous
  Country: US (occurrence: US)
  Receive Date: 20191227
  Receipt Date: 20191227
  Transmission Date: 20200409
  Serious: No
  Sender: FDA-Public Use
  Company Number: None

PATIENT
  Age: 57 Year
  Sex: Female
  Weight: 50.8 kg

DRUGS (5)
  1. TYMLOS [Suspect]
     Active Substance: ABALOPARATIDE
     Indication: OSTEOPOROSIS
     Dosage: ?          QUANTITY:80 UG MICROGRAM(S);?
     Route: 058
     Dates: start: 2019, end: 20190210
  2. VIT D [Concomitant]
     Active Substance: VITAMIN D NOS
  3. VITAMIN B12 [Concomitant]
     Active Substance: CYANOCOBALAMIN
  4. PREDNISONE. [Concomitant]
     Active Substance: PREDNISONE
  5. PROTONIX [Concomitant]
     Active Substance: PANTOPRAZOLE SODIUM

REACTIONS (6)
  - Back pain [None]
  - Agitation [None]
  - Dyskinesia [None]
  - Throat tightness [None]
  - Heart rate increased [None]
  - Headache [None]

NARRATIVE: CASE EVENT DATE: 20190930
